FAERS Safety Report 5704593-3 (Version None)
Quarter: 2008Q2

REPORT INFORMATION
  Report Type: 
  Country: None (occurrence: None)
  Receive Date: 20080414
  Receipt Date: 20080404
  Transmission Date: 20081010
  Serious: Yes (Hospitalization)
  Sender: FDA-Public Use
  Company Number: FR-BRISTOL-MYERS SQUIBB COMPANY-14147649

PATIENT
  Age: 54 Year
  Sex: Male
  Weight: 61 kg

DRUGS (8)
  1. GLUCOPHAGE [Suspect]
     Indication: TYPE 2 DIABETES MELLITUS
     Route: 048
     Dates: start: 19990101, end: 20071119
  2. ALDACTONE [Concomitant]
     Indication: HYPERTENSION
     Route: 048
     Dates: start: 20071207
  3. LANTUS [Concomitant]
  4. ZANIDIP [Concomitant]
  5. AMLOR [Concomitant]
     Route: 048
  6. LASILIX [Concomitant]
     Route: 048
  7. SELOKEN [Concomitant]
     Dosage: 1 DOSAGE FORM = 1 TAB.
     Route: 048
  8. TRIATEC [Concomitant]
     Dosage: 1 DOSAGE FORM = 1 TAB.
     Route: 048

REACTIONS (3)
  - INFLUENZA [None]
  - LACTIC ACIDOSIS [None]
  - RENAL FAILURE ACUTE [None]
